FAERS Safety Report 7597112-0 (Version None)
Quarter: 2011Q3

REPORT INFORMATION
  Report Type: 
  Country: None (occurrence: None)
  Receive Date: 20110708
  Receipt Date: 20110706
  Transmission Date: 20111222
  Serious: No
  Sender: FDA-Public Use
  Company Number: US-PFIZER INC-2011152599

PATIENT
  Sex: Female
  Weight: 47.2 kg

DRUGS (4)
  1. CALCIUM [Concomitant]
     Indication: BONE DISORDER
     Dosage: 1200 MG, DAILY
  2. PRISTIQ [Suspect]
     Indication: DEPRESSION
     Dosage: 76 MG, DAILY
     Route: 048
     Dates: start: 20110601, end: 20110705
  3. LEXAPRO [Suspect]
     Indication: DEPRESSION
     Dosage: 10 MG, DAILY
     Route: 048
     Dates: start: 20090301, end: 20100901
  4. KLONOPIN [Suspect]
     Indication: SOCIAL PROBLEM
     Dosage: UNK
     Route: 048

REACTIONS (1)
  - URTICARIA [None]
